FAERS Safety Report 21403357 (Version 1)
Quarter: 2022Q4

REPORT INFORMATION
  Report Type: Spontaneous
  Country: US (occurrence: None)
  Receive Date: 20221001
  Receipt Date: 20221001
  Transmission Date: 20230113
  Serious: Yes (unspecified)
  Sender: FDA-Public Use
  Company Number: None

PATIENT
  Age: 60 Year
  Sex: Female
  Weight: 51.3 kg

DRUGS (9)
  1. ZOMETA [Suspect]
     Active Substance: ZOLEDRONIC ACID
     Indication: Neuroendocrine carcinoma metastatic
     Dosage: OTHER QUANTITY : 1 INJECTION(S);?OTHER FREQUENCY : EVERY 3 MONTHS;?
     Route: 042
     Dates: start: 20190820, end: 20220727
  2. ZOMETA [Suspect]
     Active Substance: ZOLEDRONIC ACID
     Indication: Metastases to bone
  3. OCTREOTIDE [Concomitant]
     Active Substance: OCTREOTIDE
  4. AMOXICILLIN [Concomitant]
     Active Substance: AMOXICILLIN
  5. GABAPENTIN [Concomitant]
     Active Substance: GABAPENTIN
  6. MELOXICAM [Concomitant]
     Active Substance: MELOXICAM
  7. BENZONATATE [Concomitant]
     Active Substance: BENZONATATE
  8. SACCHAROMYCES CEREVISIAE [Concomitant]
     Active Substance: SACCHAROMYCES CEREVISIAE
  9. TYLENOL [Concomitant]

REACTIONS (1)
  - Osteonecrosis of jaw [None]

NARRATIVE: CASE EVENT DATE: 20220118
